FAERS Safety Report 6428718-X (Version None)
Quarter: 2009Q4

REPORT INFORMATION
  Report Type: 
  Country: None (occurrence: None)
  Receive Date: 20091105
  Receipt Date: 20091027
  Transmission Date: 20100525
  Serious: Yes (Hospitalization)
  Sender: FDA-Public Use
  Company Number: US-MERCK-0908USA03130

PATIENT
  Age: 88 Year
  Sex: Female

DRUGS (11)
  1. FOSAMAX [Suspect]
     Indication: OSTEOPOROSIS
     Route: 048
     Dates: start: 19950101, end: 20090101
  2. FOSAMAX [Suspect]
     Route: 048
     Dates: start: 20090101
  3. CENTRUM [Concomitant]
     Route: 065
  4. ASCORBIC ACID [Concomitant]
     Route: 065
  5. CALCIUM CITRATE [Concomitant]
     Route: 065
  6. ASPIRIN [Concomitant]
     Route: 065
  7. PREVACID [Concomitant]
     Route: 065
  8. TRAMADOL HCL [Concomitant]
     Route: 065
  9. LORAZEPAM [Concomitant]
     Route: 065
  10. OMEGA-3 MARINE TRIGLYCERIDES [Concomitant]
     Route: 065
  11. COUGH, COLD, AND FLU THERAPIES (UNSPECIFIED) [Concomitant]
     Route: 065

REACTIONS (2)
  - DYSPEPSIA [None]
  - GASTRIC POLYPS [None]
